APPROVED DRUG PRODUCT: CYCRIN
Active Ingredient: MEDROXYPROGESTERONE ACETATE
Strength: 5MG
Dosage Form/Route: TABLET;ORAL
Application: A081240 | Product #001
Applicant: ESI PHARMACAL
Approved: Oct 30, 1992 | RLD: No | RS: No | Type: DISCN